FAERS Safety Report 4437573-9 (Version None)
Quarter: 2004Q3

REPORT INFORMATION
  Report Type: 
  Country: None (occurrence: None)
  Receive Date: 20040827
  Receipt Date: 20040816
  Transmission Date: 20050211
  Serious: Yes (Death, Hospitalization, Other)
  Sender: FDA-Public Use
  Company Number: 2004005884

PATIENT
  Age: 55 Year
  Sex: Female

DRUGS (16)
  1. DILANTIN INJ [Suspect]
     Indication: CONVULSION
     Dosage: 100 MG (Q8H), INTRAVENOUS; SEE IMAGE
     Route: 042
     Dates: start: 20011227, end: 20011229
  2. DILANTIN INJ [Suspect]
     Indication: CONVULSION
     Dosage: 100 MG (Q8H), INTRAVENOUS; SEE IMAGE
     Route: 042
     Dates: start: 20011229, end: 20020108
  3. DILANTIN INJ [Suspect]
     Indication: CONVULSION
     Dosage: 100 MG (Q8H), INTRAVENOUS; SEE IMAGE
     Route: 042
     Dates: start: 20020108, end: 20020117
  4. DILANTIN INJ [Suspect]
     Indication: CONVULSION
     Dosage: 100 MG (Q8H), INTRAVENOUS; SEE IMAGE
     Route: 042
     Dates: start: 20020117
  5. QUINAPRIL HCL [Suspect]
     Indication: HYPERTENSION
     Dosage: 20 MG (BID), ORAL
     Route: 048
     Dates: start: 20011231, end: 20020128
  6. CEREBYX [Suspect]
     Indication: CONVULSION
     Dates: start: 20020202
  7. CLONIDINE [Concomitant]
  8. IBUPROFEN [Concomitant]
  9. LORAZEPAM [Concomitant]
  10. NIFEDIPINE [Concomitant]
  11. METOPROLOL TARTRATE [Concomitant]
  12. FAMOTIDINE [Concomitant]
  13. GABAPENTIN [Concomitant]
  14. PREDNISONE TAB [Concomitant]
  15. CLOTRIMAZOLE (CLOTRIMAZOLE) [Concomitant]
  16. NYSTATIN [Concomitant]

REACTIONS (26)
  - ANGIONEUROTIC OEDEMA [None]
  - ANXIETY [None]
  - ASTHENIA [None]
  - CANDIDIASIS [None]
  - CONVULSION [None]
  - DEPRESSION [None]
  - DERMATITIS EXFOLIATIVE [None]
  - DROOLING [None]
  - DRUG ERUPTION [None]
  - FACIAL PALSY [None]
  - GENERAL PHYSICAL HEALTH DETERIORATION [None]
  - HEMIPARESIS [None]
  - HEPATORENAL FAILURE [None]
  - HYPOTENSION [None]
  - INFUSION SITE INFECTION [None]
  - INTERVERTEBRAL DISC DEGENERATION [None]
  - MENTAL STATUS CHANGES [None]
  - OEDEMA PERIPHERAL [None]
  - OXYGEN SATURATION DECREASED [None]
  - PAIN [None]
  - PAIN IN JAW [None]
  - PITTING OEDEMA [None]
  - SERUM SICKNESS [None]
  - SKIN DESQUAMATION [None]
  - URINARY TRACT INFECTION [None]
  - UROSEPSIS [None]
